FAERS Safety Report 9159445 (Version 1)
Quarter: 2013Q1

REPORT INFORMATION
  Report Type: Spontaneous
  Country: US (occurrence: None)
  Receive Date: 20130312
  Receipt Date: 20130312
  Transmission Date: 20140127
  Serious: No
  Sender: FDA-Public Use
  Company Number: None

PATIENT
  Age: 49 Year
  Sex: Female
  Weight: 56.25 kg

DRUGS (1)
  1. LOSARTAN 50MG PACK [Suspect]
     Indication: HYPERTENSION
     Route: 048
     Dates: start: 20130109, end: 20130203

REACTIONS (3)
  - Rash [None]
  - Pruritus [None]
  - Erythema [None]
